FAERS Safety Report 13071873 (Version 3)
Quarter: 2017Q2

REPORT INFORMATION
  Report Type: Spontaneous
  Country: US (occurrence: US)
  Receive Date: 20161229
  Receipt Date: 20170509
  Transmission Date: 20170830
  Serious: Yes (Hospitalization, Other)
  Sender: FDA-Public Use
  Company Number: US-009507513-1612USA010320

PATIENT
  Sex: Male

DRUGS (12)
  1. CETIRIZINE HYDROCHLORIDE. [Concomitant]
     Active Substance: CETIRIZINE HYDROCHLORIDE
     Dosage: UNK
  2. POLYETHYLENE GLYCOL [Concomitant]
     Active Substance: POLYETHYLENE GLYCOLS
     Dosage: UNK
  3. REMERON [Suspect]
     Active Substance: MIRTAZAPINE
     Indication: AUTISM SPECTRUM DISORDER
     Dosage: 7.5 MG, UNK
     Route: 048
  4. BACLOFEN. [Concomitant]
     Active Substance: BACLOFEN
     Dosage: UNK
  5. CLOBAZAM [Concomitant]
     Active Substance: CLOBAZAM
     Dosage: UNK
  6. DOCUSATE SODIUM. [Concomitant]
     Active Substance: DOCUSATE SODIUM
     Dosage: UNK
  7. VALPROIC ACID. [Concomitant]
     Active Substance: VALPROIC ACID
     Dosage: UNK
  8. ALBUTEROL SULFATE. [Concomitant]
     Active Substance: ALBUTEROL SULFATE
     Dosage: UNK
     Route: 055
  9. AMPICILIN [Concomitant]
     Active Substance: AMPICILLIN
     Dosage: UNK
  10. TRILEPTAL [Concomitant]
     Active Substance: OXCARBAZEPINE
     Dosage: UNK
  11. QVAR [Concomitant]
     Active Substance: BECLOMETHASONE DIPROPIONATE
     Dosage: UNK
  12. ZANTAC [Concomitant]
     Active Substance: RANITIDINE HYDROCHLORIDE
     Dosage: UNK

REACTIONS (8)
  - Influenza [Not Recovered/Not Resolved]
  - Septic shock [Not Recovered/Not Resolved]
  - Mental status changes [Not Recovered/Not Resolved]
  - Respiratory disorder [Not Recovered/Not Resolved]
  - Wrong technique in product usage process [Unknown]
  - Product use in unapproved indication [Unknown]
  - Urinary tract infection [Not Recovered/Not Resolved]
  - Drug ineffective for unapproved indication [Unknown]

NARRATIVE: CASE EVENT DATE: 2016
